FAERS Safety Report 8953291 (Version 3)
Quarter: 2012Q4

REPORT INFORMATION
  Report Type: 
  Country: GB (occurrence: GB)
  Receive Date: 20121029
  Receipt Date: 20121029
  Transmission Date: 20130627
  Serious: Yes (Other)
  Sender: FDA-Public Use
  Company Number: GB-JNJFOC-20121007824

PATIENT
  Age: 64 Year
  Sex: Female

DRUGS (3)
  1. STELARA [Suspect]
     Indication: PSORIASIS
     Dosage: 2 years ago
     Route: 058
     Dates: start: 20100512
  2. STELARA [Suspect]
     Indication: PSORIASIS
     Route: 058
     Dates: start: 20120924, end: 20120927
  3. LEVOTHYROXINE [Concomitant]
     Indication: HYPOTHYROIDISM
     Route: 065

REACTIONS (10)
  - Injection site rash [Recovered/Resolved with Sequelae]
  - Serum sickness [Unknown]
  - Dyspnoea [Recovered/Resolved]
  - Vasculitis [Recovered/Resolved]
  - C-reactive protein increased [Unknown]
  - Blood creatinine increased [Unknown]
  - Rash [Unknown]
  - Abdominal pain [Recovered/Resolved]
  - Incorrect storage of drug [Unknown]
  - Lethargy [Recovered/Resolved]
